FAERS Safety Report 9683017 (Version 2)
Quarter: 2013Q4

REPORT INFORMATION
  Report Type: Spontaneous
  Country: US (occurrence: US)
  Receive Date: 20131112
  Receipt Date: 20131202
  Transmission Date: 20140711
  Serious: Yes (Other)
  Sender: FDA-Public Use
  Company Number: US-PFIZER INC-2013318453

PATIENT
  Age: 57 Year
  Sex: Female
  Weight: 59 kg

DRUGS (8)
  1. ESTRING [Suspect]
     Indication: ATROPHIC VULVOVAGINITIS
     Dosage: 1 DF (1 RING OF 2 MG), EVERY 3 MONTHS
     Route: 067
     Dates: start: 20120227
  2. ESTRING [Suspect]
     Indication: CYSTITIS INTERSTITIAL
  3. ESTRING [Suspect]
     Indication: MENOPAUSAL SYMPTOMS
  4. ESTRING [Suspect]
     Indication: VULVOVAGINAL PAIN
  5. TOPAMAX [Concomitant]
     Indication: MIGRAINE
     Dosage: 100 MG, 2X/DAY
  6. NADOLOL [Concomitant]
     Indication: MIGRAINE
     Dosage: 20 MG, 1X/DAY
  7. ZANTAC [Concomitant]
     Indication: ABDOMINAL DISCOMFORT
     Dosage: 150 MG, 2X/DAY
  8. MOBIC [Concomitant]
     Indication: ARTHRITIS
     Dosage: 75 MG, 2X/DAY

REACTIONS (3)
  - Urinary tract infection [Recovered/Resolved]
  - Escherichia urinary tract infection [Recovered/Resolved]
  - Cystitis klebsiella [Recovered/Resolved]
